FAERS Safety Report 8929757 (Version 1)
Quarter: 2012Q4

REPORT INFORMATION
  Report Type: 
  Country: SG (occurrence: SG)
  Receive Date: 20121128
  Receipt Date: 20121128
  Transmission Date: 20130627
  Serious: Yes (Hospitalization)
  Sender: FDA-Public Use
  Company Number: SG-BAYER-2012-124075

PATIENT
  Sex: Female

DRUGS (2)
  1. AVELOX TABLET 400 MG [Suspect]
     Indication: SINUS INFECTION
     Dosage: UNK
     Route: 048
     Dates: start: 20120915
  2. AUGMENTIN [Concomitant]
     Dosage: UNK

REACTIONS (5)
  - Anaphylactic reaction [Recovered/Resolved]
  - Eye pruritus [Recovered/Resolved]
  - Paraesthesia oral [Recovered/Resolved]
  - Cyanosis [Recovered/Resolved]
  - Aphonia [Recovered/Resolved]
